FAERS Safety Report 5494637-9 (Version None)
Quarter: 2007Q4

REPORT INFORMATION
  Report Type: 
  Country: None (occurrence: None)
  Receive Date: 20071023
  Receipt Date: 20071023
  Transmission Date: 20080405
  Serious: Yes (Other)
  Sender: FDA-Public Use
  Company Number: None

PATIENT
  Sex: Male
  Weight: 146.5 kg

DRUGS (2)
  1. CUBICIN [Suspect]
     Indication: CELLULITIS
     Dosage: 400 MG  X1  IV;  500 MG  Q 24 HOURS  IV
     Route: 042
     Dates: start: 20070927, end: 20070927
  2. CUBICIN [Suspect]
     Indication: CELLULITIS
     Dosage: 400 MG  X1  IV;  500 MG  Q 24 HOURS  IV
     Route: 042
     Dates: start: 20070928, end: 20071013

REACTIONS (2)
  - BLOOD CREATINE PHOSPHOKINASE INCREASED [None]
  - MYOGLOBIN BLOOD INCREASED [None]
